FAERS Safety Report 5533821-2 (Version None)
Quarter: 2007Q4

REPORT INFORMATION
  Report Type: 
  Country: None (occurrence: None)
  Receive Date: 20071129
  Receipt Date: 20071113
  Transmission Date: 20080405
  Serious: Yes (Hospitalization)
  Sender: FDA-Public Use
  Company Number: 8028132

PATIENT

DRUGS (1)
  1. KEPPRA [Suspect]

REACTIONS (1)
  - GASTRIC ULCER [None]
